FAERS Safety Report 20921971 (Version 1)
Quarter: 2022Q2

REPORT INFORMATION
  Report Type: Spontaneous
  Country: IR (occurrence: IR)
  Receive Date: 20220607
  Receipt Date: 20220607
  Transmission Date: 20220720
  Serious: Yes (Other)
  Sender: FDA-Public Use
  Company Number: IR-Accord-265365

PATIENT
  Age: 40 Year
  Sex: Male

DRUGS (1)
  1. METHOTREXATE [Suspect]
     Active Substance: METHOTREXATE
     Indication: Eye complication associated with device
     Dosage: (400 MG/0.1 ML) FOR A TOTAL OF 11 DOSES (FIRST, SEVEN WEEKLY DOSES;

REACTIONS (1)
  - Blindness [Unknown]
